FAERS Safety Report 6887999-9 (Version None)
Quarter: 2010Q3

REPORT INFORMATION
  Report Type: 
  Country: None (occurrence: None)
  Receive Date: 20100730
  Receipt Date: 20100726
  Transmission Date: 20110219
  Serious: Yes (Congenital Anomaly)
  Sender: FDA-Public Use
  Company Number: A0872555A

PATIENT
  Sex: Male

DRUGS (5)
  1. COMBIVIR [Suspect]
     Indication: HIV INFECTION
     Dates: end: 20040813
  2. VIRAMUNE [Suspect]
     Indication: HIV INFECTION
     Dates: end: 20040813
  3. CEPHALEXIN [Concomitant]
  4. FERROUS SULFATE [Concomitant]
  5. TOBACCO [Concomitant]

REACTIONS (2)
  - DRUG EXPOSURE DURING PREGNANCY [None]
  - KYPHOSCOLIOSIS [None]
